FAERS Safety Report 4376658-2 (Version None)
Quarter: 2004Q2

REPORT INFORMATION
  Report Type: 
  Country: None (occurrence: None)
  Receive Date: 20040601
  Receipt Date: 20040227
  Transmission Date: 20050107
  Serious: No
  Sender: FDA-Public Use
  Company Number: 701710

PATIENT
  Age: 66 Year
  Sex: Male
  Weight: 90.7194 kg

DRUGS (6)
  1. AMEVIVE [Suspect]
     Indication: PSORIASIS
     Dosage: 15 MG QW IM
     Route: 042
     Dates: start: 20040101
  2. WARFARIN SODIUM [Concomitant]
  3. DIGITEK [Concomitant]
  4. GLYBURIDE AND METFORMIN [Concomitant]
  5. ATENOLOL [Concomitant]
  6. LOVASTATIN [Concomitant]

REACTIONS (3)
  - CD4 LYMPHOCYTES [None]
  - NAUSEA [None]
  - PSORIASIS [None]
